FAERS Safety Report 6523180-0 (Version None)
Quarter: 2009Q4

REPORT INFORMATION
  Report Type: 
  Country: None (occurrence: None)
  Receive Date: 20091222
  Receipt Date: 20091207
  Transmission Date: 20100525
  Serious: Yes (Hospitalization)
  Sender: FDA-Public Use
  Company Number: 2008-00101

PATIENT
  Age: 48 Year
  Sex: Male
  Weight: 67 kg

DRUGS (4)
  1. VELCADE [Suspect]
     Indication: MESOTHELIOMA MALIGNANT
     Dosage: 2.40 MG, INTRAVENOUS
     Route: 042
     Dates: start: 20071211, end: 20071221
  2. CISPLATIN [Suspect]
     Indication: MESOTHELIOMA MALIGNANT
     Dosage: 40.00 MG, INTRAVENOUS
     Route: 042
     Dates: start: 20071211, end: 20071211
  3. OXYCONTIN [Concomitant]
  4. FUROSEMIDE [Concomitant]

REACTIONS (3)
  - FATIGUE [None]
  - LUNG INFECTION [None]
  - PAIN [None]
